FAERS Safety Report 17938862 (Version 1)
Quarter: 2020Q2

REPORT INFORMATION
  Report Type: Spontaneous
  Country: ES (occurrence: ES)
  Receive Date: 20200625
  Receipt Date: 20200625
  Transmission Date: 20200714
  Serious: Yes (Death, Hospitalization, Other)
  Sender: FDA-Public Use
  Company Number: ES-SUN PHARMACEUTICAL INDUSTRIES LTD-2020RR-251286

PATIENT
  Age: 69 Year
  Sex: Male

DRUGS (7)
  1. MEROPENEM. [Suspect]
     Active Substance: MEROPENEM
     Indication: NOSOCOMIAL INFECTION
  2. AMIKACIN. [Suspect]
     Active Substance: AMIKACIN
     Indication: EVIDENCE BASED TREATMENT
     Dosage: UNK
     Route: 065
  3. MEROPENEM. [Suspect]
     Active Substance: MEROPENEM
     Indication: ANTIBIOTIC THERAPY
     Dosage: UNK
     Route: 065
  4. TIGECYCLINE. [Suspect]
     Active Substance: TIGECYCLINE
     Indication: ANTIBIOTIC THERAPY
     Dosage: UNK
     Route: 065
  5. RIFAMPICIN [Suspect]
     Active Substance: RIFAMPIN
     Indication: BACTERIAL INFECTION
     Route: 042
  6. TIGECYCLINE. [Suspect]
     Active Substance: TIGECYCLINE
     Indication: NOSOCOMIAL INFECTION
  7. SULPHAMETHOXAZOLE/TRIMETHOPRIM [Suspect]
     Active Substance: SULFAMETHOXAZOLE\TRIMETHOPRIM
     Indication: BACTERIAL INFECTION
     Dosage: UNK
     Route: 042

REACTIONS (2)
  - Drug ineffective [Fatal]
  - Bacterial infection [Fatal]
